FAERS Safety Report 7016355-8 (Version None)
Quarter: 2010Q3

REPORT INFORMATION
  Report Type: 
  Country: None (occurrence: None)
  Receive Date: 20100927
  Receipt Date: 20100915
  Transmission Date: 20110219
  Serious: Yes (Hospitalization)
  Sender: FDA-Public Use
  Company Number: IT-PFIZER INC-2010117137

PATIENT
  Sex: Female

DRUGS (1)
  1. FLUCONAZOLE [Suspect]

REACTIONS (1)
  - RASH ERYTHEMATOUS [None]
